FAERS Safety Report 5990095-6 (Version None)
Quarter: 2008Q4

REPORT INFORMATION
  Report Type: 
  Country: None (occurrence: None)
  Receive Date: 20081209
  Receipt Date: 20081201
  Transmission Date: 20090506
  Serious: Yes (Other)
  Sender: FDA-Public Use
  Company Number: 2008SP022696

PATIENT
  Age: 41 Year
  Sex: Female

DRUGS (6)
  1. PEG-INTRON [Suspect]
     Indication: HEPATITIS C
     Dosage: 150 MCG; QW; SC
     Route: 058
     Dates: start: 20080818, end: 20081024
  2. RIBAVIRIN [Suspect]
     Indication: HEPATITIS C
     Dosage: 1200 MG; QD; PO
     Route: 048
     Dates: start: 20080818
  3. PHENERGAN HCL [Concomitant]
  4. MIDRIN /00450801/ [Concomitant]
  5. OXYCONTIN [Concomitant]
  6. NORFLEX /00018303/ [Concomitant]

REACTIONS (7)
  - EYE DISORDER [None]
  - EYE PAIN [None]
  - MIGRAINE [None]
  - NAUSEA [None]
  - RETINAL DETACHMENT [None]
  - RETINOPATHY [None]
  - VISUAL ACUITY REDUCED [None]
